FAERS Safety Report 23469057 (Version 3)
Quarter: 2024Q4

REPORT INFORMATION
  Report Type: Spontaneous
  Country: CZ (occurrence: CZ)
  Receive Date: 20240202
  Receipt Date: 20241125
  Transmission Date: 20250115
  Serious: Yes (Other)
  Sender: CELLTRION
  Company Number: CZ-CELLTRION INC.-2024CZ002271

PATIENT

DRUGS (11)
  1. RITUXIMAB [Suspect]
     Active Substance: RITUXIMAB
     Indication: Chronic lymphocytic leukaemia
     Dosage: 375/500 MG/M2 FIRST LINE OF TREATMENT INCLUDED FOUR CYCLES
     Route: 042
     Dates: start: 201307, end: 201310
  2. RITUXIMAB [Suspect]
     Active Substance: RITUXIMAB
     Dosage: 500 MG/M2, THE SECOND LINE OF TREATMENT
     Route: 042
     Dates: start: 201811
  3. CYCLOPHOSPHAMIDE [Suspect]
     Active Substance: CYCLOPHOSPHAMIDE
     Indication: Chronic lymphocytic leukaemia
     Dosage: FIRST LINE OF TREATMENT INCLUDED FOUR CYCLES
     Route: 065
     Dates: start: 201307, end: 201310
  4. FLUDARABINE [Suspect]
     Active Substance: FLUDARABINE PHOSPHATE
     Indication: Chronic lymphocytic leukaemia
     Dosage: FIRST LINE OF TREATMENT INCLUDED FOUR CYCLES
     Route: 065
     Dates: start: 201307, end: 201310
  5. IDELALISIB [Concomitant]
     Active Substance: IDELALISIB
     Indication: Chronic lymphocytic leukaemia
     Dosage: UNK, EVERY 0.5 DAY
     Dates: start: 201811
  6. HYALURONIDASE (HUMAN RECOMBINANT)\RITUXIMAB [Concomitant]
     Active Substance: HYALURONIDASE (HUMAN RECOMBINANT)\RITUXIMAB
     Indication: Chronic lymphocytic leukaemia
     Dosage: 3 X 1,600 MG
     Route: 065
     Dates: start: 2018, end: 201903
  7. ACALABRUTINIB [Concomitant]
     Active Substance: ACALABRUTINIB
     Indication: Chronic lymphocytic leukaemia
     Dosage: UNK, EVERY 1 DAY
     Dates: start: 2023
  8. ACALABRUTINIB [Concomitant]
     Active Substance: ACALABRUTINIB
     Dosage: UNK, EVERY 0.5 DAY
     Dates: start: 202212
  9. ACALABRUTINIB [Concomitant]
     Active Substance: ACALABRUTINIB
     Dosage: THIRD LINE THERAPY
     Dates: start: 202007, end: 202211
  10. DEXAMETHASONE [Concomitant]
     Active Substance: DEXAMETHASONE
     Indication: Chronic lymphocytic leukaemia
     Dosage: 40 MILLIGRAM
     Dates: start: 202212
  11. DEXAMETHASONE [Concomitant]
     Active Substance: DEXAMETHASONE
     Dosage: 20 MILLIGRAM, EVERY 1 DAY
     Dates: start: 201401, end: 201402

REACTIONS (1)
  - Disease progression [Recovered/Resolved]

NARRATIVE: CASE EVENT DATE: 20140101
